FAERS Safety Report 8022335-6 (Version None)
Quarter: 2012Q1

REPORT INFORMATION
  Report Type: 
  Country: None (occurrence: None)
  Receive Date: 20120104
  Receipt Date: 20111227
  Transmission Date: 20120608
  Serious: Yes (Other)
  Sender: FDA-Public Use
  Company Number: PHEH2011US012590

PATIENT
  Sex: Female

DRUGS (9)
  1. LORAZEPAM [Concomitant]
  2. METHADONE HCL [Concomitant]
  3. SPIRONOLACTONE [Concomitant]
  4. FUROSEMIDE [Concomitant]
  5. ASPIRIN [Concomitant]
  6. LANSOPRAZOLE [Concomitant]
  7. GLEEVEC [Suspect]
     Dosage: 200 MG, DAILY
  8. LEVOTHYROXINE SODIUM [Concomitant]
  9. ZOFRAN [Concomitant]

REACTIONS (1)
  - PULMONARY VEIN STENOSIS [None]
